FAERS Safety Report 7298536-1 (Version None)
Quarter: 2010Q4

REPORT INFORMATION
  Report Type: 
  Country: None (occurrence: None)
  Receive Date: 20101029
  Receipt Date: 20100416
  Transmission Date: 20110411
  Serious: Yes (Other)
  Sender: FDA-Public Use
  Company Number: 2010-1266

PATIENT
  Age: 11 Year
  Weight: 25.5 kg

DRUGS (1)
  1. INCRELEX [Suspect]
     Indication: GROWTH HORMONE DEFICIENCY
     Dosage: 4.08 MG (0.08 MG/KG,2 IN 1 D),SUBCUTANEOUS
     Route: 058
     Dates: start: 20070925

REACTIONS (1)
  - HYPOGLYCAEMIC UNCONSCIOUSNESS [None]
